FAERS Safety Report 18389965 (Version 1)
Quarter: 2020Q4

REPORT INFORMATION
  Report Type: Spontaneous
  Country: IN (occurrence: IN)
  Receive Date: 20201015
  Receipt Date: 20201015
  Transmission Date: 20210114
  Serious: Yes (Hospitalization)
  Sender: FDA-Public Use
  Company Number: NVSC2020IN274960

PATIENT
  Sex: Female

DRUGS (2)
  1. RAFINLAR [Suspect]
     Active Substance: DABRAFENIB
     Indication: NON-SMALL CELL LUNG CANCER
     Dosage: 150 MG, BID
     Route: 048
     Dates: start: 20200923, end: 20201005
  2. MEQSEL [Suspect]
     Active Substance: TRAMETINIB
     Indication: NON-SMALL CELL LUNG CANCER
     Dosage: 2 MG, QD
     Route: 048
     Dates: start: 20200923, end: 20201005

REACTIONS (7)
  - Blood creatinine increased [Unknown]
  - Blood urea abnormal [Unknown]
  - Oxygen saturation decreased [Unknown]
  - Diarrhoea [Unknown]
  - Full blood count increased [Unknown]
  - Vomiting [Unknown]
  - Dizziness [Unknown]
